FAERS Safety Report 19441190 (Version 1)
Quarter: 2021Q2

REPORT INFORMATION
  Report Type: Spontaneous
  Country: GB (occurrence: GB)
  Receive Date: 20210621
  Receipt Date: 20210621
  Transmission Date: 20210717
  Serious: Yes (Hospitalization)
  Sender: FDA-Public Use
  Company Number: GB-TEVA-2021-GB-1921193

PATIENT
  Age: 56 Year
  Sex: Male
  Weight: 84 kg

DRUGS (5)
  1. CO?AMOXICLAV [Concomitant]
     Active Substance: AMOXICILLIN\CLAVULANATE POTASSIUM
  2. CLARITHROMYCIN. [Suspect]
     Active Substance: CLARITHROMYCIN
     Route: 065
  3. IBUPROFEN. [Concomitant]
     Active Substance: IBUPROFEN
  4. GENTAMICIN. [Concomitant]
     Active Substance: GENTAMICIN
  5. METRONIDAZOLE. [Concomitant]
     Active Substance: METRONIDAZOLE

REACTIONS (13)
  - Musculoskeletal stiffness [Recovering/Resolving]
  - Arthralgia [Recovering/Resolving]
  - Body temperature increased [Recovering/Resolving]
  - Rash [Recovering/Resolving]
  - Bacillus infection [Recovering/Resolving]
  - Pyrexia [Recovering/Resolving]
  - Inflammation [Recovering/Resolving]
  - Oropharyngeal pain [Recovering/Resolving]
  - Arthritis reactive [Recovering/Resolving]
  - Endocarditis [Recovering/Resolving]
  - Joint effusion [Recovering/Resolving]
  - Night sweats [Recovering/Resolving]
  - Antineutrophil cytoplasmic antibody [Recovering/Resolving]

NARRATIVE: CASE EVENT DATE: 20210406
